FAERS Safety Report 5410128-5 (Version None)
Quarter: 2007Q3

REPORT INFORMATION
  Report Type: 
  Country: None (occurrence: None)
  Receive Date: 20070809
  Receipt Date: 20070802
  Transmission Date: 20080115
  Serious: Yes (Other)
  Sender: FDA-Public Use
  Company Number: JP-SHR-JP-2007-027533

PATIENT
  Age: 45 Year
  Sex: Female
  Weight: 49 kg

DRUGS (1)
  1. MAGNEVIST [Suspect]
     Dosage: 10 ML, 1 DOSE
     Route: 042
     Dates: start: 20070719, end: 20070719

REACTIONS (2)
  - CORNEAL OEDEMA [None]
  - ERYTHEMA [None]
